FAERS Safety Report 8186625-9 (Version None)
Quarter: 2012Q1

REPORT INFORMATION
  Report Type: 
  Country: None (occurrence: None)
  Receive Date: 20120305
  Receipt Date: 20120305
  Transmission Date: 20120608
  Serious: No
  Sender: FDA-Public Use
  Company Number: None

PATIENT
  Sex: Male
  Weight: 68.0396 kg

DRUGS (7)
  1. PROTONIX [Concomitant]
  2. ZYTIGA [Suspect]
     Indication: PROSTATE CANCER
     Dosage: 1000MG DAILY BY MOUTH
     Route: 048
     Dates: start: 20111027, end: 20120301
  3. CALCIUM [Concomitant]
  4. METENX [Concomitant]
  5. ZOMETA [Concomitant]
  6. VITAMIN D [Concomitant]
  7. PREDNISONE TAB [Concomitant]

REACTIONS (2)
  - BLOOD CREATININE INCREASED [None]
  - BLOOD UREA INCREASED [None]
